FAERS Safety Report 21107615 (Version 1)
Quarter: 2022Q3

REPORT INFORMATION
  Report Type: Spontaneous
  Country: US (occurrence: US)
  Receive Date: 20220720
  Receipt Date: 20220720
  Transmission Date: 20221027
  Serious: Yes (Other)
  Sender: FDA-Public Use
  Company Number: US-AZURITY PHARMACEUTICALS, INC.-US-2022ARB001540

PATIENT
  Sex: Male
  Weight: 2.4 kg

DRUGS (5)
  1. BACLOFEN [Suspect]
     Active Substance: BACLOFEN
     Indication: Product used for unknown indication
     Dosage: INTRAUTERINE EXPOSURE VIA MOTHER
     Route: 064
  2. BACLOFEN [Suspect]
     Active Substance: BACLOFEN
     Dosage: 0.125 MILLIGRAM/KILOGRAM, Q6H (DAY OF LIFE (DOL) 4)
     Route: 048
  3. BACLOFEN [Suspect]
     Active Substance: BACLOFEN
     Dosage: 0.125 MILLIGRAM/KILOGRAM, Q8H (DOL 5-7)
     Route: 048
  4. BACLOFEN [Suspect]
     Active Substance: BACLOFEN
     Dosage: 0.125 MILLIGRAM/KILOGRAM, Q12H (DOL 8-10)
     Route: 048
  5. BACLOFEN [Suspect]
     Active Substance: BACLOFEN
     Dosage: 0.125 MILLIGRAM/KILOGRAM, QD (DOL 11-13)
     Route: 048

REACTIONS (2)
  - Posturing [Recovered/Resolved]
  - Drug withdrawal syndrome neonatal [Recovered/Resolved]
